FAERS Safety Report 23064497 (Version 5)
Quarter: 2025Q4

REPORT INFORMATION
  Report Type: Report from Study
  Country: US (occurrence: US)
  Receive Date: 20231013
  Receipt Date: 20251029
  Transmission Date: 20260117
  Serious: Yes (Hospitalization, Other)
  Sender: ABBVIE
  Company Number: US-ABBVIE-4752792

PATIENT
  Age: 47 Year
  Sex: Female

DRUGS (6)
  1. RINVOQ [Suspect]
     Active Substance: UPADACITINIB
     Indication: Eczema
     Dosage: FORM STRENGTH15 MILLIGRAMS; LAST ADMIN DATE: 2023
     Route: 048
     Dates: start: 202302
  2. RINVOQ [Suspect]
     Active Substance: UPADACITINIB
     Indication: Eczema
     Dosage: FORM STRENGTH:15 MILLIGRAMS
     Route: 048
     Dates: start: 2023, end: 2023
  3. RINVOQ [Suspect]
     Active Substance: UPADACITINIB
     Indication: Eczema
     Dosage: FORM STRENGTH:15 MILLIGRAMS; LAST ADMIN DATE: 2024
     Route: 048
     Dates: start: 202401
  4. RINVOQ [Suspect]
     Active Substance: UPADACITINIB
     Indication: Eczema
     Dosage: FORM STRENGTH15 MILLIGRAMS
     Route: 048
     Dates: start: 2023, end: 20230919
  5. RINVOQ [Suspect]
     Active Substance: UPADACITINIB
     Indication: Eczema
     Dosage: STRENGTH:FORM:15 MILLIGRAMS
     Route: 048
     Dates: start: 202404
  6. RINVOQ [Suspect]
     Active Substance: UPADACITINIB
     Indication: Eczema
     Dosage: STRENGTH:FORM:15 MILLIGRAMS; LAST ADMIN DATE: 2024
     Route: 048
     Dates: start: 202402

REACTIONS (42)
  - Brain neoplasm benign [Unknown]
  - Unevaluable event [Recovered/Resolved]
  - Influenza [Unknown]
  - Chest discomfort [Not Recovered/Not Resolved]
  - Upper respiratory tract infection [Not Recovered/Not Resolved]
  - Ear infection [Unknown]
  - Pruritus [Recovered/Resolved]
  - Abdominal pain upper [Unknown]
  - Dizziness [Not Recovered/Not Resolved]
  - Arthralgia [Unknown]
  - Nasal discharge discolouration [Not Recovered/Not Resolved]
  - Ear pain [Unknown]
  - Fatigue [Unknown]
  - Rash [Recovered/Resolved]
  - Blood iron decreased [Unknown]
  - Dry skin [Not Recovered/Not Resolved]
  - Stress [Unknown]
  - Neck pain [Unknown]
  - Anxiety [Unknown]
  - Confusional state [Unknown]
  - Spider vein [Not Recovered/Not Resolved]
  - Hypoaesthesia [Unknown]
  - Bone pain [Unknown]
  - Pain [Not Recovered/Not Resolved]
  - Eczema [Not Recovered/Not Resolved]
  - Head discomfort [Unknown]
  - Memory impairment [Unknown]
  - Pruritus [Not Recovered/Not Resolved]
  - Sleep disorder [Unknown]
  - Skin fissures [Not Recovered/Not Resolved]
  - Urticaria [Unknown]
  - Pain [Recovered/Resolved]
  - Rash [Unknown]
  - Productive cough [Unknown]
  - Headache [Unknown]
  - Purulence [Unknown]
  - Oropharyngeal pain [Unknown]
  - Back pain [Unknown]
  - Erythema [Unknown]
  - Skin weeping [Unknown]
  - Skin wrinkling [Unknown]
  - Skin abrasion [Unknown]

NARRATIVE: CASE EVENT DATE: 20230101
